FAERS Safety Report 6424972-9 (Version None)
Quarter: 2009Q4

REPORT INFORMATION
  Report Type: 
  Country: None (occurrence: None)
  Receive Date: 20091103
  Receipt Date: 20091029
  Transmission Date: 20100525
  Serious: Yes (Other)
  Sender: FDA-Public Use
  Company Number: US-WYE-H11607609

PATIENT
  Sex: Male

DRUGS (3)
  1. PRISTIQ [Suspect]
     Route: 048
     Dates: start: 20080101, end: 20080101
  2. KLONOPIN [Suspect]
     Dosage: 1 MG UP TO FOUR TIMES DAILY
  3. LEXAPRO [Concomitant]
     Dosage: UNKNOWN
     Dates: start: 20080601

REACTIONS (4)
  - DIZZINESS [None]
  - HOMICIDE [None]
  - HOSTILITY [None]
  - SEDATION [None]
